FAERS Safety Report 14427026 (Version 4)
Quarter: 2018Q2

REPORT INFORMATION
  Report Type: Spontaneous
  Country: PL (occurrence: PL)
  Receive Date: 20180123
  Receipt Date: 20180606
  Transmission Date: 20180711
  Serious: Yes (Hospitalization)
  Sender: FDA-Public Use
  Company Number: PL-BAUSCH-BL-2017-036042

PATIENT
  Age: 34 Year
  Sex: Female

DRUGS (14)
  1. AMITRIPTYLINE HYDROCHLORIDE. [Interacting]
     Active Substance: AMITRIPTYLINE HYDROCHLORIDE
     Indication: ANXIETY
  2. AMITRIPTYLINE HYDROCHLORIDE. [Interacting]
     Active Substance: AMITRIPTYLINE HYDROCHLORIDE
     Indication: TENSION
  3. AMITRIPTYLINE HYDROCHLORIDE. [Interacting]
     Active Substance: AMITRIPTYLINE HYDROCHLORIDE
     Indication: DEPRESSIVE SYMPTOM
     Dosage: 100 MILLIGRAM DAILY: 25 MG IN THE MORNING AND AT NOON AND 50 MG IN THE NIGHT
     Route: 065
  4. HYDROXYZINE [Suspect]
     Active Substance: HYDROXYZINE HYDROCHLORIDE
     Indication: DEPRESSIVE SYMPTOM
     Dosage: 75 MILLIGRAM DAILY
     Route: 065
  5. INSULIN [Suspect]
     Active Substance: INSULIN NOS
     Indication: DIABETES MELLITUS
     Route: 065
  6. INSULIN [Concomitant]
     Active Substance: INSULIN NOS
     Indication: DIABETES MELLITUS
  7. FLUOXETINE HYDROCHLORIDE. [Suspect]
     Active Substance: FLUOXETINE HYDROCHLORIDE
     Indication: BINGE EATING
     Route: 048
  8. FLUOXETINE HYDROCHLORIDE. [Suspect]
     Active Substance: FLUOXETINE HYDROCHLORIDE
     Indication: DEPRESSIVE SYMPTOM
     Dosage: 60 MILLIGRAM DAILY
     Route: 048
  9. AMITRIPTYLINE HYDROCHLORIDE. [Interacting]
     Active Substance: AMITRIPTYLINE HYDROCHLORIDE
     Indication: SLEEP DISORDER
  10. AMITRIPTYLINE HYDROCHLORIDE. [Concomitant]
     Active Substance: AMITRIPTYLINE HYDROCHLORIDE
     Indication: TENSION
     Dosage: 25 MG PLUS 50 MG DAILY FOR TENSION, TENDENCY/ANXIETY, DETERIORATION OF AMOUNT AND QUALITY OF SLEEP
  11. FLUOXETINE HYDROCHLORIDE. [Suspect]
     Active Substance: FLUOXETINE HYDROCHLORIDE
     Indication: VOMITING
     Dosage: 20 MILLIGRAM DAILY: AT THE MORNING
     Route: 048
  12. METFORMIN [Suspect]
     Active Substance: METFORMIN HYDROCHLORIDE
     Indication: DIABETES MELLITUS
     Route: 065
  13. FLUOXETINE HYDROCHLORIDE. [Suspect]
     Active Substance: FLUOXETINE HYDROCHLORIDE
     Indication: BULIMIA NERVOSA
  14. METFORMIN [Concomitant]
     Active Substance: METFORMIN HYDROCHLORIDE
     Indication: DIABETES MELLITUS

REACTIONS (27)
  - Drug resistance [Unknown]
  - Dysphoria [Not Recovered/Not Resolved]
  - Electrocardiogram QT prolonged [Unknown]
  - Weight increased [Unknown]
  - Fear [Not Recovered/Not Resolved]
  - Tension [Not Recovered/Not Resolved]
  - Binge eating [Unknown]
  - Poor quality sleep [Unknown]
  - Anxiety [Not Recovered/Not Resolved]
  - Hypoglycaemia [Unknown]
  - Drug interaction [Unknown]
  - Vomiting [Unknown]
  - Body mass index increased [Unknown]
  - Tearfulness [Not Recovered/Not Resolved]
  - Increased appetite [Unknown]
  - Blood glucose increased [Unknown]
  - Hyperglycaemia [Unknown]
  - Irritability [Unknown]
  - Insomnia [Unknown]
  - Alanine aminotransferase increased [Unknown]
  - Underdose [Unknown]
  - Drug ineffective [Unknown]
  - Condition aggravated [Unknown]
  - Diet failure [Unknown]
  - Affect lability [Not Recovered/Not Resolved]
  - Aspartate aminotransferase increased [Unknown]
  - Sleep disorder [Unknown]
